FAERS Safety Report 5619276-8 (Version None)
Quarter: 2008Q1

REPORT INFORMATION
  Report Type: 
  Country: None (occurrence: None)
  Receive Date: 20080205
  Receipt Date: 20080129
  Transmission Date: 20080703
  Serious: Yes (Other)
  Sender: FDA-Public Use
  Company Number: 2008SP001334

PATIENT
  Age: 47 Year
  Sex: Male
  Weight: 80 kg

DRUGS (3)
  1. NASONEX [Suspect]
     Indication: RHINITIS
     Dosage: 50 MCG; BID
     Dates: start: 20071105, end: 20071126
  2. PANTOZOL /01263202/ [Concomitant]
  3. METHADONE HCL [Concomitant]

REACTIONS (4)
  - FEELING ABNORMAL [None]
  - IMPAIRED WORK ABILITY [None]
  - SUICIDAL IDEATION [None]
  - TINNITUS [None]
